FAERS Safety Report 15838386 (Version 1)
Quarter: 2019Q1

REPORT INFORMATION
  Report Type: Report from Study
  Country: US (occurrence: US)
  Receive Date: 20190117
  Receipt Date: 20190117
  Transmission Date: 20190417
  Serious: Yes (Hospitalization)
  Sender: FDA-Public Use
  Company Number: US-PFIZER INC-2019018275

PATIENT
  Age: 71 Year
  Sex: Female

DRUGS (32)
  1. IRINOTECAN HCL [Suspect]
     Active Substance: IRINOTECAN HYDROCHLORIDE
     Dosage: DAY 1 OF EACH 14-DAY CYCLE (150 MG/M2)
     Route: 042
     Dates: start: 20180926, end: 20180926
  2. ELIQUIS [Concomitant]
     Active Substance: APIXABAN
     Indication: DEEP VEIN THROMBOSIS
     Dosage: 5 MG (2. 5 MG,2 IN 1 D)
     Route: 048
     Dates: start: 20180906
  3. FILGRASTIM [Concomitant]
     Active Substance: FILGRASTIM
     Indication: NEUTROPENIA
     Dosage: 480 MG, AS REQUIRED
     Route: 058
     Dates: start: 20180913
  4. 5-FLUOROURACIL [FLUOROURACIL] [Suspect]
     Active Substance: FLUOROURACIL
     Dosage: 1920 MG/M2, 2 DAYS
     Route: 042
     Dates: start: 20180926, end: 20180928
  5. 5-FLUOROURACIL [FLUOROURACIL] [Suspect]
     Active Substance: FLUOROURACIL
     Dosage: 1600 MG/M2, UNK
     Route: 042
     Dates: start: 20181017
  6. LOPERAMIDE HYDROCHLORIDE. [Concomitant]
     Active Substance: LOPERAMIDE HYDROCHLORIDE
     Indication: DIARRHOEA
     Dosage: 2 MG, AS REQUIRED
     Route: 048
     Dates: start: 20180118
  7. DEXAMETHASONE. [Concomitant]
     Active Substance: DEXAMETHASONE
     Indication: CHEMOTHERAPY
     Dosage: 10 MG, AS REQUIRED
     Route: 042
     Dates: start: 20180905
  8. AZITHROMYCIN ANHYDROUS. [Concomitant]
     Active Substance: AZITHROMYCIN ANHYDROUS
     Indication: RESPIRATORY TRACT INFECTION VIRAL
     Dosage: 250 MG,1 IN 1 D
     Route: 048
     Dates: start: 20181015
  9. FERROUS SULFATE. [Concomitant]
     Active Substance: FERROUS SULFATE
     Indication: ANAEMIA
     Dosage: 325 MG, 2 IN 1 D
     Route: 048
     Dates: start: 20180306
  10. ONDANSETRON [Concomitant]
     Active Substance: ONDANSETRON
     Indication: NAUSEA
     Dosage: 8 MG, AS REQUIRED
     Route: 048
     Dates: start: 20170907
  11. ONDANSETRON [Concomitant]
     Active Substance: ONDANSETRON
     Indication: PROPHYLAXIS OF NAUSEA AND VOMITING
  12. TYLENOL 8HR ARTHRITIS(PARACETAMOL) [Concomitant]
     Indication: OSTEOARTHRITIS
     Dosage: 1300 MG, 1 IN 1 D
     Route: 048
     Dates: start: 20180726
  13. CIPROFLOXACIN. [Concomitant]
     Active Substance: CIPROFLOXACIN
     Indication: NEUTROPENIA
     Dosage: 500 MG, 2 IN 1 D
     Route: 048
     Dates: start: 20180918
  14. IRINOTECAN HCL [Suspect]
     Active Substance: IRINOTECAN HYDROCHLORIDE
     Dosage: DAY 1 OF EACH 14-DAY CYCLE (120 MG/M2)
     Route: 042
     Dates: start: 20181017
  15. BEVACIZUMAB. [Suspect]
     Active Substance: BEVACIZUMAB
     Indication: COLORECTAL CANCER METASTATIC
     Dosage: DAY 1 OF EACH 14-DAY CYCLE (5 MG/KG)
     Route: 042
     Dates: start: 20180905
  16. OXYCODONE HYDROCHLORIDE. [Concomitant]
     Active Substance: OXYCODONE HYDROCHLORIDE
     Indication: OSTEOARTHRITIS
     Dosage: 5 MG, AS REQUIRED
     Route: 048
     Dates: start: 20180725
  17. ARANESP(DARBEPOETIN ALFA) [Concomitant]
     Indication: ANAEMIA
     Dosage: 200 MCG, AS REQUIRED
     Route: 058
     Dates: start: 20180905
  18. DARBEPOETIN ALFA [Concomitant]
     Active Substance: DARBEPOETIN ALFA
     Indication: ANAEMIA VITAMIN B12 DEFICIENCY
  19. DULOXETINE DR [Concomitant]
     Active Substance: DULOXETINE
     Indication: NEUROPATHY PERIPHERAL
     Dosage: 60 MG, 1 IN 1 D
     Route: 048
     Dates: start: 20180606
  20. GAS X (SIMETICONE) [Concomitant]
     Indication: FLATULENCE
     Dosage: 125 MG, AS REQUIRED
     Route: 048
     Dates: start: 20181005
  21. IRINOTECAN HCL [Suspect]
     Active Substance: IRINOTECAN HYDROCHLORIDE
     Indication: COLORECTAL CANCER METASTATIC
     Dosage: DAY 1 OF EACH 14-DAY CYCLE (180 MG/M2)
     Route: 040
     Dates: start: 20180905, end: 20180905
  22. 5-FLUOROURACIL [FLUOROURACIL] [Suspect]
     Active Substance: FLUOROURACIL
     Dosage: 2400 MG/M2, 2 DAYS
     Route: 042
     Dates: start: 20180905, end: 20180907
  23. VENTOLIN [Concomitant]
     Active Substance: ALBUTEROL SULFATE
     Indication: CHRONIC OBSTRUCTIVE PULMONARY DISEASE
     Dosage: 90 MCG, AS REQUIRED
     Route: 055
     Dates: start: 20170105
  24. CYANOCOBALAMIN. [Concomitant]
     Active Substance: CYANOCOBALAMIN
     Indication: VITAMIN B12 DEFICIENCY
     Dosage: 1000 MCG, AS REQUIRED
     Route: 048
     Dates: start: 20151108
  25. DARBEPOETIN ALFA [Concomitant]
     Active Substance: DARBEPOETIN ALFA
     Indication: ANAEMIA
     Dosage: 200 MCG (200 MCG, 1 IN 1 D)
     Route: 058
     Dates: start: 20180725
  26. VITAMIN D (ERGOCALCIFEROL) [Concomitant]
     Active Substance: ERGOCALCIFEROL
     Indication: SUPPLEMENTATION THERAPY
     Dosage: 1000 UNIT, 1 IN 1 D
     Route: 048
     Dates: start: 20160509
  27. DIPHENOXYLATE/ATROPINE [Concomitant]
     Active Substance: ATROPINE\DIPHENOXYLATE
     Indication: DIARRHOEA
     Dosage: 0.025 MG, AS REQURIED
     Route: 048
     Dates: start: 20180522
  28. PALONOSETRON HYDROCHLORIDE. [Concomitant]
     Active Substance: PALONOSETRON HYDROCHLORIDE
     Indication: CHEMOTHERAPY
     Dosage: 0.25 MG, AS REQUIRED
     Route: 042
     Dates: start: 20180905
  29. LEUCOVORIN [FOLINIC ACID] [Suspect]
     Active Substance: LEUCOVORIN
     Indication: COLORECTAL CANCER METASTATIC
     Dosage: DAY 1 OF EACH 14-DAY CYCLE (400 MG/M2)
     Route: 042
     Dates: start: 20180905
  30. 5-FLUOROURACIL [FLUOROURACIL] [Suspect]
     Active Substance: FLUOROURACIL
     Indication: COLORECTAL CANCER METASTATIC
     Dosage: 400 MG/M2, UNK
     Route: 040
     Dates: start: 20180905, end: 20180905
  31. ELIQUIS [Concomitant]
     Active Substance: APIXABAN
     Indication: FIBRIN D DIMER INCREASED
  32. LOSARTAN. [Concomitant]
     Active Substance: LOSARTAN
     Indication: HYPERTENSION
     Dosage: 50 MG, 2 IN 1 D
     Route: 048
     Dates: start: 20180130

REACTIONS (1)
  - Localised infection [Not Recovered/Not Resolved]

NARRATIVE: CASE EVENT DATE: 20181226
